FAERS Safety Report 8862381 (Version 1)
Quarter: 2012Q4

REPORT INFORMATION
  Report Type: 
  Country: RO (occurrence: RO)
  Receive Date: 20121026
  Receipt Date: 20121026
  Transmission Date: 20130627
  Serious: Yes (Other)
  Sender: FDA-Public Use
  Company Number: RO-SANOFI-AVENTIS-2012SA076909

PATIENT
  Age: 73 Year
  Sex: Male

DRUGS (11)
  1. FUROSEMIDE [Suspect]
     Indication: DRUG USE FOR UNKNOWN INDICATION
     Route: 065
  2. TRIMETAZIDINE DIHYDROCHLORIDE [Suspect]
     Indication: DRUG USE FOR UNKNOWN INDICATION
     Route: 065
  3. ROSUVASTATIN [Suspect]
     Indication: DRUG USE FOR UNKNOWN INDICATION
     Route: 065
  4. DIGOXIN [Concomitant]
  5. DIGOXIN [Concomitant]
  6. BISOPROLOL [Concomitant]
  7. TURIMONIT [Concomitant]
  8. ZOFENOPRIL [Concomitant]
  9. ASPIRIN [Concomitant]
  10. METFORMIN [Concomitant]
     Indication: TYPE II DIABETES MELLITUS
  11. LISINOPRIL [Concomitant]
     Indication: HYPERTENSIVE CARDIOMYOPATHY

REACTIONS (5)
  - Delirium [Recovered/Resolved]
  - Amnesia [Recovered/Resolved]
  - Tremor [Recovered/Resolved]
  - Dehydration [Unknown]
  - Asthenia [Unknown]
